FAERS Safety Report 5187418-7 (Version None)
Quarter: 2006Q4

REPORT INFORMATION
  Report Type: 
  Country: None (occurrence: None)
  Receive Date: 20061220
  Receipt Date: 20051017
  Transmission Date: 20070319
  Serious: No
  Sender: FDA-Public Use
  Company Number: US-AMGEN-US154564

PATIENT
  Sex: Male

DRUGS (3)
  1. ENBREL [Suspect]
     Indication: PSORIASIS
     Route: 058
     Dates: start: 20050915, end: 20051201
  2. ENBREL [Suspect]
     Dates: start: 20050901
  3. BACTRIM DS [Concomitant]
     Route: 065
     Dates: start: 20051017, end: 20051026

REACTIONS (3)
  - CONDITION AGGRAVATED [None]
  - INJECTION SITE ABSCESS [None]
  - PSORIASIS [None]
